APPROVED DRUG PRODUCT: ZOLEDRONIC ACID
Active Ingredient: ZOLEDRONIC ACID
Strength: EQ 4MG BASE/5ML
Dosage Form/Route: INJECTABLE;INTRAVENOUS
Application: A207751 | Product #001
Applicant: EUGIA PHARMA SPECIALITIES LTD
Approved: Sep 26, 2016 | RLD: No | RS: No | Type: DISCN